FAERS Safety Report 8758030 (Version 2)
Quarter: 2012Q4

REPORT INFORMATION
  Report Type: 
  Country: US (occurrence: US)
  Receive Date: 20120828
  Receipt Date: 20121005
  Transmission Date: 20130627
  Serious: Yes (Other)
  Sender: FDA-Public Use
  Company Number: US-ELI_LILLY_AND_COMPANY-US201208006743

PATIENT
  Age: 16 Year
  Sex: Male
  Weight: 81.63 kg

DRUGS (3)
  1. STRATTERA [Suspect]
     Indication: ATTENTION DEFICIT/HYPERACTIVITY DISORDER
     Dosage: 60 mg, unknown
     Dates: end: 20120817
  2. LITHIUM [Concomitant]
     Dosage: 450 mg, bid
  3. LOXAPINE [Concomitant]
     Dosage: 25 DF, qd

REACTIONS (3)
  - Bundle branch block right [Recovered/Resolved]
  - Musculoskeletal pain [Recovered/Resolved]
  - Chest pain [Recovered/Resolved]
